FAERS Safety Report 6181518-0 (Version None)
Quarter: 2009Q2

REPORT INFORMATION
  Report Type: 
  Country: None (occurrence: None)
  Receive Date: 20090501
  Receipt Date: 20090429
  Transmission Date: 20091009
  Serious: Yes (Life-Threatening, Hospitalization)
  Sender: FDA-Public Use
  Company Number: GXKR2009DE05159

PATIENT
  Age: 78 Year
  Sex: Male
  Weight: 75 kg

DRUGS (8)
  1. FALITHROM (NGX) (PHENPROCOUMON) FILM-COATED TABLET [Suspect]
     Indication: ATRIAL FIBRILLATION
     Dosage: ORAL
     Route: 048
     Dates: start: 20070105, end: 20080530
  2. PRAVASTATIN [Suspect]
     Indication: DYSLIPIDAEMIA
     Dosage: 40 MG, QD, ORAL
     Route: 048
     Dates: start: 20070105
  3. DIGITOXIN INJ [Concomitant]
  4. DIOVANE (VALSARTAN) [Concomitant]
  5. HYDROCHLOROTHIAZIDE [Concomitant]
  6. MOLSIDOMINE (MOLSIDOMINE) [Concomitant]
  7. NEBIVOLOL HCL [Concomitant]
  8. TORSEMIDE [Concomitant]

REACTIONS (1)
  - GASTROINTESTINAL HAEMORRHAGE [None]
